FAERS Safety Report 15722470 (Version 1)
Quarter: 2018Q4

REPORT INFORMATION
  Report Type: Spontaneous
  Country: FR (occurrence: FR)
  Receive Date: 20181214
  Receipt Date: 20181214
  Transmission Date: 20190205
  Serious: Yes (Death, Other)
  Sender: FDA-Public Use
  Company Number: PHHY2018FR184457

PATIENT
  Age: 64 Year
  Sex: Female

DRUGS (1)
  1. ETANERCEPT [Suspect]
     Active Substance: ETANERCEPT
     Indication: PUSTULAR PSORIASIS
     Route: 065

REACTIONS (4)
  - Pulmonary embolism [Fatal]
  - Sepsis [Fatal]
  - Embolism [Fatal]
  - Product use in unapproved indication [Unknown]
